FAERS Safety Report 5931444-4 (Version None)
Quarter: 2008Q4

REPORT INFORMATION
  Report Type: 
  Country: None (occurrence: None)
  Receive Date: 20081024
  Receipt Date: 20081024
  Transmission Date: 20090506
  Serious: No
  Sender: FDA-Public Use
  Company Number: None

PATIENT
  Age: 37 Year
  Sex: Female
  Weight: 81.1939 kg

DRUGS (1)
  1. WELLBUTRIN XL [Suspect]
     Dosage: 150 QD

REACTIONS (2)
  - IRRITABILITY [None]
  - RESTLESSNESS [None]
